FAERS Safety Report 14148041 (Version 2)
Quarter: 2019Q2

REPORT INFORMATION
  Report Type: Report from Study
  Country: US (occurrence: US)
  Receive Date: 20171101
  Receipt Date: 20190411
  Transmission Date: 20190711
  Serious: No
  Sender: FDA-Public Use
  Company Number: PHEH2017US034927

PATIENT
  Age: 60 Year
  Sex: Female
  Weight: 73.93 kg

DRUGS (1)
  1. GLATOPA [Suspect]
     Active Substance: GLATIRAMER ACETATE
     Indication: MULTIPLE SCLEROSIS
     Dosage: 20 MG, QD
     Route: 058
     Dates: start: 20160625

REACTIONS (4)
  - Product storage error [Unknown]
  - Wrong technique in device usage process [Unknown]
  - Incorrect dose administered [Unknown]
  - Malabsorption from administration site [Unknown]

NARRATIVE: CASE EVENT DATE: 20170716
